FAERS Safety Report 9321956 (Version 3)
Quarter: 2013Q4

REPORT INFORMATION
  Report Type: Report from Study
  Country: US (occurrence: US)
  Receive Date: 20130531
  Receipt Date: 20131112
  Transmission Date: 20140711
  Serious: Yes (Hospitalization)
  Sender: FDA-Public Use
  Company Number: US-PFIZER INC-2013157172

PATIENT
  Age: 61 Year
  Sex: Female

DRUGS (8)
  1. SUNITINIB MALATE [Suspect]
     Indication: METASTATIC RENAL CELL CARCINOMA
     Dosage: 50 MG, 1X/DAY
     Route: 048
     Dates: start: 20130403, end: 20130422
  2. NIVOLUMAB [Suspect]
     Indication: METASTATIC RENAL CELL CARCINOMA
     Dosage: 5 MG/KG, CYCLIC
     Route: 042
     Dates: start: 20130403, end: 20130403
  3. NORVASC [Concomitant]
  4. CALTRATE + D [Concomitant]
  5. ONE-A-DAY [Concomitant]
  6. PRILOSEC [Concomitant]
  7. COENZYME Q10 [Concomitant]
  8. ULTRAM [Concomitant]
     Dosage: UNK
     Dates: start: 20130213

REACTIONS (2)
  - Hyponatraemia [Recovered/Resolved]
  - Renal failure acute [Recovered/Resolved]
